FAERS Safety Report 23947821 (Version 1)
Quarter: 2024Q2

REPORT INFORMATION
  Report Type: Report from Study
  Country: US (occurrence: US)
  Receive Date: 20240606
  Receipt Date: 20240606
  Transmission Date: 20240716
  Serious: Yes (Other)
  Sender: FDA-Public Use
  Company Number: US-ABBVIE-5784517

PATIENT
  Sex: Female

DRUGS (1)
  1. HUMIRA [Suspect]
     Active Substance: ADALIMUMAB
     Indication: Uveitis
     Dosage: FORM STRENGTH: 40MG?CITRATE FREE
     Route: 058
     Dates: start: 20240126

REACTIONS (4)
  - Embolism [Not Recovered/Not Resolved]
  - Nephrolithiasis [Unknown]
  - Kidney infection [Recovering/Resolving]
  - Upper respiratory tract infection [Not Recovered/Not Resolved]

NARRATIVE: CASE EVENT DATE: 20240101
